FAERS Safety Report 5034436-5 (Version None)
Quarter: 2006Q2

REPORT INFORMATION
  Report Type: 
  Country: None (occurrence: None)
  Receive Date: 20060626
  Receipt Date: 20060306
  Transmission Date: 20061013
  Serious: Yes (Disabling, Other)
  Sender: FDA-Public Use
  Company Number: JP-MERCK-0603USA01400

PATIENT
  Age: 67 Year
  Sex: Female
  Weight: 46 kg

DRUGS (6)
  1. FOSAMAX [Suspect]
     Indication: OSTEOPOROSIS
     Route: 048
     Dates: start: 20060222, end: 20060305
  2. FOSAMAX [Suspect]
     Route: 048
     Dates: start: 20060101
  3. EPADEL [Concomitant]
     Indication: HYPERLIPIDAEMIA
     Route: 048
  4. ONEALFA [Concomitant]
     Indication: OSTEOPOROSIS
     Route: 048
  5. ARIMIDEX [Concomitant]
     Indication: BREAST CANCER
     Route: 048
  6. PARIET [Concomitant]
     Indication: GASTRIC ULCER
     Route: 048

REACTIONS (2)
  - GASTRIC CANCER [None]
  - POST GASTRIC SURGERY SYNDROME [None]
